FAERS Safety Report 9624702 (Version 1)
Quarter: 2013Q4

REPORT INFORMATION
  Report Type: Spontaneous
  Country: JP (occurrence: None)
  Receive Date: 20131010
  Receipt Date: 20131010
  Transmission Date: 20140711
  Serious: Yes (Death, Hospitalization, Other)
  Sender: FDA-Public Use
  Company Number: CO-OR-JP-2013-116

PATIENT
  Age: 68 Year
  Sex: Female

DRUGS (7)
  1. PREDNISOLONE [Suspect]
     Indication: SYSTEMIC SCLEROSIS
     Dates: start: 2008
  2. METHYLPREDNISOLONE [Concomitant]
  3. CYCLOPHOSPHAMIDE [Concomitant]
  4. RITUXIMAB [Concomitant]
  5. METHYLPREDNISOLONE [Concomitant]
  6. CYCLOPHOSPHAMIDE [Concomitant]
  7. RITUXIMAB [Concomitant]

REACTIONS (6)
  - Coma [None]
  - Pulmonary haemorrhage [None]
  - Off label use [None]
  - Thrombotic thrombocytopenic purpura [None]
  - Pneumonia [None]
  - Bronchopulmonary aspergillosis [None]
